FAERS Safety Report 15170468 (Version 1)
Quarter: 2018Q3

REPORT INFORMATION
  Report Type: Spontaneous
  Country: US (occurrence: US)
  Receive Date: 20180622
  Receipt Date: 20180622
  Transmission Date: 20181010
  Serious: Yes (Hospitalization)
  Sender: FDA-Public Use
  Company Number: None

PATIENT
  Age: 65 Year
  Sex: Female
  Weight: 88.2 kg

DRUGS (1)
  1. AZACTAM [Suspect]
     Active Substance: AZTREONAM
     Indication: LUNG ABSCESS
     Dosage: 1GM Q8H IV GRAVITY?
     Route: 042
     Dates: start: 20170602, end: 20170615

REACTIONS (3)
  - Chest discomfort [None]
  - Dyspnoea [None]
  - Syncope [None]

NARRATIVE: CASE EVENT DATE: 20170615
